FAERS Safety Report 10488175 (Version 1)
Quarter: 2014Q4

REPORT INFORMATION
  Report Type: Spontaneous
  Country: US (occurrence: US)
  Receive Date: 20141002
  Receipt Date: 20141002
  Transmission Date: 20150528
  Serious: No
  Sender: FDA-Public Use
  Company Number: US-TEVA-462456USA

PATIENT
  Sex: Female

DRUGS (2)
  1. LORAZEPAM. [Interacting]
     Active Substance: LORAZEPAM
  2. CARBAMAZEPINE. [Suspect]
     Active Substance: CARBAMAZEPINE

REACTIONS (6)
  - Drug interaction [Unknown]
  - Dizziness [Unknown]
  - Coordination abnormal [Unknown]
  - Diplopia [Unknown]
  - Gait disturbance [Unknown]
  - Urinary incontinence [Unknown]

NARRATIVE: CASE EVENT DATE: 201307
